FAERS Safety Report 16590896 (Version 6)
Quarter: 2019Q3

REPORT INFORMATION
  Report Type: Report from Study
  Country: CA (occurrence: CA)
  Receive Date: 20190718
  Receipt Date: 20190920
  Transmission Date: 20191004
  Serious: Yes (Other)
  Sender: FDA-Public Use
  Company Number: CA-ROCHE-2355153

PATIENT
  Age: 53 Year
  Sex: Female

DRUGS (3)
  1. GABAPENTIN. [Concomitant]
     Active Substance: GABAPENTIN
     Dosage: ONGOING YES
     Route: 065
     Dates: start: 201901
  2. OCREVUS [Suspect]
     Active Substance: OCRELIZUMAB
     Indication: PRIMARY PROGRESSIVE MULTIPLE SCLEROSIS
     Dosage: AT DAY 0 AND 14, THEN 600 MG EVERY 6 MONTH
     Route: 042
     Dates: start: 20190705
  3. BACLOFEN. [Concomitant]
     Active Substance: BACLOFEN
     Dosage: ONGOING YES
     Route: 065
     Dates: start: 201811

REACTIONS (19)
  - Infusion related reaction [Recovered/Resolved]
  - Cough [Recovering/Resolving]
  - Dizziness [Unknown]
  - Eye pain [Unknown]
  - Ocular discomfort [Not Recovered/Not Resolved]
  - Paraesthesia [Unknown]
  - Vision blurred [Not Recovered/Not Resolved]
  - Feeling abnormal [Unknown]
  - Musculoskeletal stiffness [Unknown]
  - Tension headache [Not Recovered/Not Resolved]
  - Head discomfort [Not Recovered/Not Resolved]
  - Headache [Unknown]
  - Muscle tightness [Not Recovered/Not Resolved]
  - Paraesthesia [Not Recovered/Not Resolved]
  - Hypoaesthesia [Unknown]
  - Eye disorder [Unknown]
  - Balance disorder [Unknown]
  - Fatigue [Unknown]
  - Multiple sclerosis [Recovered/Resolved]

NARRATIVE: CASE EVENT DATE: 20190705
